FAERS Safety Report 24658289 (Version 1)
Quarter: 2024Q4

REPORT INFORMATION
  Report Type: Other
  Country: US (occurrence: US)
  Receive Date: 20241125
  Receipt Date: 20241125
  Transmission Date: 20250115
  Serious: Yes (Death, Hospitalization)
  Sender: BIONPHARMA INC.
  Company Number: US-Bion-014392

PATIENT

DRUGS (1)
  1. DEXAMETHASONE [Suspect]
     Active Substance: DEXAMETHASONE
     Indication: Atrioventricular block complete

REACTIONS (2)
  - Drug ineffective for unapproved indication [Fatal]
  - Foetal exposure during pregnancy [Fatal]
